FAERS Safety Report 8615533-1 (Version None)
Quarter: 2012Q3

REPORT INFORMATION
  Report Type: 
  Country: None (occurrence: None)
  Receive Date: 20120809
  Receipt Date: 20120725
  Transmission Date: 20120928
  Serious: Yes (Other)
  Sender: FDA-Public Use
  Company Number: TPA2012A01321

PATIENT
  Age: 82 Year
  Sex: Male

DRUGS (5)
  1. GLUCOPHAGE [Concomitant]
  2. ACTOS [Suspect]
     Indication: TYPE 2 DIABETES MELLITUS
     Dates: start: 20050901, end: 20090601
  3. METFORMIN HCL [Concomitant]
  4. GLUCOTROL [Concomitant]
  5. JANUVIA [Concomitant]

REACTIONS (1)
  - BLADDER TRANSITIONAL CELL CARCINOMA [None]
